FAERS Safety Report 19613468 (Version 1)
Quarter: 2021Q3

REPORT INFORMATION
  Report Type: Spontaneous
  Country: US (occurrence: US)
  Receive Date: 20210726
  Receipt Date: 20210726
  Transmission Date: 20211014
  Serious: Yes (Hospitalization)
  Sender: FDA-Public Use
  Company Number: None

PATIENT
  Age: 59 Year
  Sex: Female

DRUGS (4)
  1. VITAMIN D [Concomitant]
     Active Substance: VITAMIN D NOS
  2. SENNA [Concomitant]
     Active Substance: SENNA LEAF\SENNOSIDES\SENNOSIDES A AND B
  3. AFINITOR [Suspect]
     Active Substance: EVEROLIMUS
     Route: 048
     Dates: start: 202103
  4. VITAMIN C [Suspect]
     Active Substance: ASCORBIC ACID

REACTIONS (2)
  - Asthenia [None]
  - Mass excision [None]

NARRATIVE: CASE EVENT DATE: 20210614
